FAERS Safety Report 6859665-7 (Version None)
Quarter: 2010Q3

REPORT INFORMATION
  Report Type: 
  Country: None (occurrence: None)
  Receive Date: 20100719
  Receipt Date: 20100713
  Transmission Date: 20110219
  Serious: Yes (Other)
  Sender: FDA-Public Use
  Company Number: US-BRISTOL-MYERS SQUIBB COMPANY-15191265

PATIENT
  Age: 67 Year
  Sex: Female

DRUGS (7)
  1. BUSPAR [Suspect]
  2. LYRICA [Suspect]
     Dosage: CAPSULE, HARD
     Dates: end: 20100412
  3. GABAPENTIN [Suspect]
     Dates: start: 20100101
  4. ASPIRIN [Concomitant]
     Dosage: 5-GRAIN 325MG TABS
  5. THYROID TAB [Concomitant]
     Dosage: TABS
  6. HYDROCHLOROTHIAZIDE [Concomitant]
  7. ALLEGRA [Concomitant]

REACTIONS (11)
  - CARPAL TUNNEL SYNDROME [None]
  - CERVICAL SPINAL STENOSIS [None]
  - DEPRESSION [None]
  - EYE DISORDER [None]
  - MUSCLE RIGIDITY [None]
  - OEDEMA PERIPHERAL [None]
  - PAIN IN EXTREMITY [None]
  - PARAESTHESIA [None]
  - PERIPHERAL COLDNESS [None]
  - TREMOR [None]
  - VAGINAL DISCHARGE [None]
